FAERS Safety Report 4781812-1 (Version None)
Quarter: 2005Q3

REPORT INFORMATION
  Report Type: 
  Country: None (occurrence: None)
  Receive Date: 20050927
  Receipt Date: 20050908
  Transmission Date: 20060218
  Serious: Yes (Other)
  Sender: FDA-Public Use
  Company Number: USA0509107843

PATIENT
  Sex: Female

DRUGS (5)
  1. CYMBALTA [Suspect]
     Dosage: 60 MG
     Dates: start: 20050201, end: 20050801
  2. DURAGESIC-100 [Concomitant]
  3. NORTRIPTYLINE HCL [Concomitant]
  4. SINGULAIR [Concomitant]
  5. VERAPAMIL [Concomitant]

REACTIONS (1)
  - CONVULSION [None]
